FAERS Safety Report 4655475-X (Version None)
Quarter: 2005Q2

REPORT INFORMATION
  Report Type: 
  Country: None (occurrence: None)
  Receive Date: 20050505
  Receipt Date: 20050425
  Transmission Date: 20051028
  Serious: Yes (Hospitalization)
  Sender: FDA-Public Use
  Company Number: 050047

PATIENT
  Age: 66 Year
  Sex: Male
  Weight: 84.369 kg

DRUGS (6)
  1. HALFLYTELY [Suspect]
     Indication: COLONOSCOPY
     Dosage: 20 MG/2L, 1X, PO
     Route: 048
     Dates: start: 20050424
  2. PROTONIX [Concomitant]
  3. METAMUCIL-2 [Concomitant]
  4. DIOVAN [Concomitant]
  5. ZETIA [Concomitant]
  6. ASPIRIN [Concomitant]

REACTIONS (2)
  - COLITIS ISCHAEMIC [None]
  - COLONIC HAEMORRHAGE [None]
